FAERS Safety Report 20832224 (Version 1)
Quarter: 2022Q2

REPORT INFORMATION
  Report Type: 
  Country: None (occurrence: None)
  Receive Date: 20220516
  Receipt Date: 20220516
  Transmission Date: 20220720
  Serious: No
  Sender: FDA-Public Use
  Company Number: TW-CHUGAI-2022017578

PATIENT

DRUGS (1)
  1. ENSPRYNG [Suspect]
     Active Substance: SATRALIZUMAB-MWGE
     Dosage: 120MG,LOADING DOSE
     Dates: start: 20220421

REACTIONS (2)
  - Rash [None]
  - Neuritis [None]

NARRATIVE: CASE EVENT DATE: 20220425
